FAERS Safety Report 7166824-5 (Version None)
Quarter: 2010Q4

REPORT INFORMATION
  Report Type: 
  Country: None (occurrence: None)
  Receive Date: 20101213
  Receipt Date: 20101213
  Transmission Date: 20110411
  Serious: No
  Sender: FDA-Public Use
  Company Number: None

PATIENT
  Age: 23 Year
  Sex: Male
  Weight: 65.7716 kg

DRUGS (1)
  1. ACCUTANE [Suspect]
     Indication: ACNE
     Dosage: 40-80-40 DAILY PO
     Route: 048
     Dates: start: 19940216, end: 19940326

REACTIONS (3)
  - ERECTILE DYSFUNCTION [None]
  - NERVE INJURY [None]
  - URINARY INCONTINENCE [None]
